FAERS Safety Report 17400691 (Version 2)
Quarter: 2020Q3

REPORT INFORMATION
  Report Type: Spontaneous
  Country: US (occurrence: US)
  Receive Date: 20200211
  Receipt Date: 20200731
  Transmission Date: 20201102
  Serious: No
  Sender: FDA-Public Use
  Company Number: NVSC2020US036680

PATIENT
  Sex: Female

DRUGS (3)
  1. VOTRIENT [Suspect]
     Active Substance: PAZOPANIB HYDROCHLORIDE
     Indication: CONNECTIVE TISSUE NEOPLASM
     Dosage: 400 MG, QD
     Route: 048
     Dates: start: 20200108
  2. VOTRIENT [Suspect]
     Active Substance: PAZOPANIB HYDROCHLORIDE
     Indication: NEOPLASM MALIGNANT
  3. VOTRIENT [Suspect]
     Active Substance: PAZOPANIB HYDROCHLORIDE
     Indication: SOFT TISSUE SARCOMA

REACTIONS (2)
  - Diarrhoea [Unknown]
  - Muscle spasms [Unknown]
